FAERS Safety Report 17881131 (Version 4)
Quarter: 2021Q2

REPORT INFORMATION
  Report Type: Spontaneous
  Country: US (occurrence: US)
  Receive Date: 20200610
  Receipt Date: 20210412
  Transmission Date: 20210717
  Serious: Yes (Other)
  Sender: FDA-Public Use
  Company Number: US-PFIZER INC-2020220086

PATIENT
  Age: 77 Year
  Sex: Female

DRUGS (1)
  1. SUTENT [Suspect]
     Active Substance: SUNITINIB MALATE
     Indication: RENAL CANCER
     Dosage: 50 MG, CYCLIC (2 WEEKS ON, 1 WEEK OFF)

REACTIONS (4)
  - Skin cancer [Unknown]
  - Second primary malignancy [Unknown]
  - Urinary tract infection [Unknown]
  - Sciatic nerve neuropathy [Unknown]
